FAERS Safety Report 8396247-2 (Version None)
Quarter: 2012Q2

REPORT INFORMATION
  Report Type: 
  Country: None (occurrence: None)
  Receive Date: 20120530
  Receipt Date: 20120524
  Transmission Date: 20120825
  Serious: Yes (Hospitalization, Other)
  Sender: FDA-Public Use
  Company Number: PHEH2012US002780

PATIENT
  Sex: Female

DRUGS (22)
  1. ZINC SULFATE [Concomitant]
     Dosage: UNK, ONCE A DAY
  2. PAXIL [Concomitant]
     Indication: DEPRESSION
     Dosage: 25 MG, QD
  3. POTASSIUM CHLORIDE [Concomitant]
     Indication: BLOOD POTASSIUM DECREASED
     Dosage: 550 MG, BID
     Route: 048
  4. ACID REDUCER [Concomitant]
     Indication: ACID BASE BALANCE ABNORMAL
     Dosage: 150 MG, BID
     Route: 048
  5. EVENING PRIMROSE OIL [Concomitant]
     Dosage: UNK, ONCE A DAY
  6. GLUCOPHAGE [Concomitant]
     Indication: DIABETES MELLITUS
     Dosage: 550 MG, BID
     Route: 048
  7. D3 [Concomitant]
     Dosage: UNK, ONCE A DAY
     Route: 048
  8. LASIX [Concomitant]
     Dosage: 40 MG, BID
     Route: 048
  9. B50 [Concomitant]
     Dosage: UNK, ONCE A DAY
     Route: 048
  10. DIOVAN [Suspect]
     Indication: HYPERTENSION
     Dosage: 80 MG, PER DAY
     Route: 048
  11. CONTINUOUS POSITIVE AIRWAY PRESSURE [Concomitant]
     Dosage: UNK UKN, UNK
  12. ISOSORB [Concomitant]
     Dosage: 90 MG, PER DAY
  13. CALCIUM MAGNESIUM [Concomitant]
     Dosage: UNK, ONCE A DAY
  14. LOPRESSOR [Concomitant]
     Dosage: 50 MG, BID
     Route: 048
  15. THYROID TAB [Concomitant]
     Indication: THYROID DISORDER
     Dosage: 90 MG, QD
  16. FOLIC ACID [Concomitant]
     Dosage: 1 UG, QD
  17. MULTI-VITAMIN [Concomitant]
     Dosage: UNK, ONCE A DAY
  18. ASPIRIN [Concomitant]
     Indication: CARDIAC DISORDER
     Dosage: 80 MG, QD
  19. PLAVIX [Concomitant]
     Indication: CARDIAC DISORDER
     Dosage: 75 MG, QD
     Route: 048
  20. IMDUR [Concomitant]
     Indication: CARDIAC DISORDER
     Dosage: 60 AND 30 MG ONCE A DAY
     Route: 048
  21. B6 [Concomitant]
     Dosage: UNK, ONCE A DAY
     Route: 048
  22. COENZYME Q10 [Concomitant]
     Dosage: UNK, TWICE A DAY

REACTIONS (2)
  - AORTIC VALVE DISEASE [None]
  - DYSPNOEA [None]
